FAERS Safety Report 16378997 (Version 2)
Quarter: 2019Q3

REPORT INFORMATION
  Report Type: Spontaneous
  Country: FR (occurrence: FR)
  Receive Date: 20190531
  Receipt Date: 20190819
  Transmission Date: 20191004
  Serious: Yes (Other)
  Sender: FDA-Public Use
  Company Number: FR-MYLANLABS-2019M1050361

PATIENT
  Age: 50 Year

DRUGS (2)
  1. ERLOTINIB [Suspect]
     Active Substance: ERLOTINIB
     Indication: ADENOCARCINOMA
     Dosage: UNK
     Route: 065
  2. ROCILETINIB [Suspect]
     Active Substance: ROCILETINIB
     Indication: ADENOCARCINOMA
     Dosage: UNK
     Route: 065

REACTIONS (6)
  - Drug resistance [Unknown]
  - Malignant neoplasm progression [Unknown]
  - Metastases to bone [Unknown]
  - EGFR gene mutation [Unknown]
  - Metastases to lung [Unknown]
  - Disease progression [Unknown]
